FAERS Safety Report 9915019 (Version 4)
Quarter: 2014Q2

REPORT INFORMATION
  Report Type: Report from Study
  Country: US (occurrence: US)
  Receive Date: 20140220
  Receipt Date: 20140610
  Transmission Date: 20141212
  Serious: Yes (Hospitalization)
  Sender: FDA-Public Use
  Company Number: US-SA-2014SA016924

PATIENT
  Age: 60 Year
  Sex: Female

DRUGS (4)
  1. AUBAGIO [Suspect]
     Indication: MULTIPLE SCLEROSIS
     Route: 048
     Dates: start: 20131007, end: 20131220
  2. AUBAGIO [Suspect]
     Indication: MULTIPLE SCLEROSIS
     Route: 065
     Dates: start: 20140505
  3. OXYCODONE [Concomitant]
  4. LYRICA [Concomitant]

REACTIONS (9)
  - Wound [Unknown]
  - Fall [Unknown]
  - Pyrexia [Unknown]
  - Urinary tract infection [Unknown]
  - Asthenia [Recovering/Resolving]
  - Muscular weakness [Unknown]
  - Bladder catheterisation [Unknown]
  - Bladder spasm [Unknown]
  - Drug dose omission [Unknown]
